FAERS Safety Report 12211076 (Version 5)
Quarter: 2017Q1

REPORT INFORMATION
  Report Type: Spontaneous
  Country: US (occurrence: US)
  Receive Date: 20160325
  Receipt Date: 20170103
  Transmission Date: 20170428
  Serious: Yes (Hospitalization)
  Sender: FDA-Public Use
  Company Number: US-PFIZER INC-2016168702

PATIENT
  Sex: Female

DRUGS (1)
  1. LYRICA [Suspect]
     Active Substance: PREGABALIN
     Dosage: 150 MG, UNK

REACTIONS (6)
  - Memory impairment [Unknown]
  - Vision blurred [Unknown]
  - Headache [Unknown]
  - Eye swelling [Unknown]
  - Conjunctivitis [Unknown]
  - Fall [Unknown]
